FAERS Safety Report 8234679-3 (Version None)
Quarter: 2012Q1

REPORT INFORMATION
  Report Type: 
  Country: None (occurrence: None)
  Receive Date: 20120326
  Receipt Date: 20120320
  Transmission Date: 20120608
  Serious: Yes (Hospitalization, Other)
  Sender: FDA-Public Use
  Company Number: US-PFIZER INC-2012073685

PATIENT
  Sex: Female

DRUGS (14)
  1. TERIPARATIDE [Suspect]
     Dosage: UNK,PRE FILLED PEN
     Dates: start: 20110520
  2. LEXAPRO [Concomitant]
  3. SINGULAIR [Suspect]
     Dosage: UNK
     Dates: end: 20120219
  4. XYZAL [Concomitant]
  5. POTASSIUM [Concomitant]
  6. MS CONTIN [Concomitant]
  7. MIRAPEX [Concomitant]
  8. LYRICA [Suspect]
     Dosage: UNK
     Dates: end: 20120219
  9. CARAFATE [Concomitant]
  10. FAMCLCLOVLR [Concomitant]
  11. NEXIUM [Suspect]
     Dosage: UNK
     Dates: end: 20120219
  12. MILK OF MAGNESIA TAB [Concomitant]
  13. CELECOXIB [Suspect]
     Dosage: UNK
     Dates: end: 20120209
  14. ADVAIR DISKUS 100/50 [Concomitant]

REACTIONS (15)
  - EYE DISCHARGE [None]
  - MALAISE [None]
  - ARTHRALGIA [None]
  - NAUSEA [None]
  - PAIN [None]
  - EYE DISORDER [None]
  - RETCHING [None]
  - ACTIVITIES OF DAILY LIVING IMPAIRED [None]
  - FATIGUE [None]
  - DIARRHOEA [None]
  - VISUAL IMPAIRMENT [None]
  - DIZZINESS [None]
  - VOMITING [None]
  - KERATITIS [None]
  - ABDOMINAL PAIN UPPER [None]
